FAERS Safety Report 9856388 (Version 1)
Quarter: 2014Q1

REPORT INFORMATION
  Report Type: Spontaneous
  Country: US (occurrence: US)
  Receive Date: 20140130
  Receipt Date: 20140130
  Transmission Date: 20141002
  Serious: Yes (Other)
  Sender: FDA-Public Use
  Company Number: US-JNJFOC-20140114857

PATIENT
  Age: 55 Year
  Sex: Male
  Weight: 136.08 kg

DRUGS (3)
  1. INVOKANA [Suspect]
     Indication: TYPE 2 DIABETES MELLITUS
     Route: 048
     Dates: start: 20140123
  2. PAIN MEDICATION [Concomitant]
  3. CARDIAC MEDICATION [Concomitant]
     Indication: CARDIAC DISORDER

REACTIONS (3)
  - Hypoglycaemia [Recovered/Resolved]
  - Therapeutic response increased [Recovered/Resolved]
  - Blood glucose increased [Recovered/Resolved]
